FAERS Safety Report 7099407-6 (Version None)
Quarter: 2010Q4

REPORT INFORMATION
  Report Type: 
  Country: None (occurrence: None)
  Receive Date: 20101112
  Receipt Date: 20080821
  Transmission Date: 20110411
  Serious: No
  Sender: FDA-Public Use
  Company Number: US-KINGPHARMUSA00001-K200800987

PATIENT

DRUGS (2)
  1. AVINZA [Suspect]
  2. MORPHINE [Concomitant]

REACTIONS (1)
  - BRADYCARDIA [None]
